FAERS Safety Report 9055312 (Version 1)
Quarter: 2013Q1

REPORT INFORMATION
  Report Type: Spontaneous
  Country: US (occurrence: US)
  Receive Date: 20130206
  Receipt Date: 20130206
  Transmission Date: 20140127
  Serious: No
  Sender: FDA-Public Use
  Company Number: US-PFIZER INC-2011279971

PATIENT
  Age: 60 Year
  Sex: Male
  Weight: 68.03 kg

DRUGS (2)
  1. PREPARATION H HYDROCORTISONE [Suspect]
     Dosage: UNK, 1X/DAY
     Route: 061
     Dates: start: 201110, end: 2011
  2. PREPARATION H [Suspect]
     Indication: HAEMORRHOIDS
     Dosage: UNK, 2X/DAY
     Route: 061
     Dates: start: 20111113, end: 201111

REACTIONS (1)
  - Drug ineffective [Unknown]
